FAERS Safety Report 7429510-X (Version None)
Quarter: 2011Q2

REPORT INFORMATION
  Report Type: 
  Country: None (occurrence: None)
  Receive Date: 20110421
  Receipt Date: 20110415
  Transmission Date: 20111010
  Serious: Yes (Hospitalization)
  Sender: FDA-Public Use
  Company Number: US-GILEAD-2011-0038571

PATIENT
  Sex: Female

DRUGS (1)
  1. LETAIRIS [Suspect]
     Indication: PRODUCT USED FOR UNKNOWN INDICATION
     Route: 048
     Dates: start: 20101208

REACTIONS (5)
  - BLOOD PRESSURE ABNORMAL [None]
  - SWELLING FACE [None]
  - TOOTH DISORDER [None]
  - DYSPNOEA [None]
  - PYREXIA [None]
